FAERS Safety Report 8618936 (Version 2)
Quarter: 2012Q4

REPORT INFORMATION
  Report Type: 
  Country: US (occurrence: US)
  Receive Date: 20120618
  Receipt Date: 20121206
  Transmission Date: 20130627
  Serious: Yes (Hospitalization)
  Sender: FDA-Public Use
  Company Number: US-BAYER-2012-057636

PATIENT
  Age: 38 Year
  Sex: Female
  Weight: 104 kg

DRUGS (21)
  1. YASMIN [Suspect]
     Indication: ACNE
     Dosage: UNK
     Dates: start: 20041124, end: 20080713
  2. YASMIN [Suspect]
     Indication: CONTRACEPTION
  3. YASMIN [Suspect]
     Indication: OVARIAN CYST
  4. YASMIN [Suspect]
     Indication: PREMENSTRUAL SYNDROME
  5. PAROXETIN [Concomitant]
     Indication: MENOPAUSE
     Dosage: 20 mg, Daily
     Dates: start: 20030930
  6. PAROXETIN [Concomitant]
     Indication: MENOPAUSE
     Dosage: 30 mg, UNK
  7. LORAZEPAM [Concomitant]
     Indication: MENOPAUSE
     Dosage: 1 mg, Daily
     Dates: start: 200306
  8. CIPROFLOXACIN HCL [Concomitant]
     Indication: URINARY TRACT INFECTION
     Dosage: 500 mg, Daily
     Dates: start: 20050913
  9. ALLEGRA [Concomitant]
     Dosage: 180 mg, UNK
  10. DARVOCET-N [Concomitant]
     Dosage: 100 mg, every 6 hours as needed
  11. PAXIL CR [Concomitant]
     Dosage: 25 mg, UNK
  12. PAXIL CR [Concomitant]
  13. DOXYCYCLINE HYCLATE [Concomitant]
     Dosage: 100 mg, UNK
  14. ZITHROMAX [Concomitant]
     Dosage: 250 mg, UNK
  15. DOXYCYCLINE [Concomitant]
     Dosage: 100 mg, UNK
  16. DILAUDID [Concomitant]
  17. PHENERGAN [Concomitant]
  18. PROTONIX [Concomitant]
     Dosage: 40 mg, daily
  19. ATIVAN [Concomitant]
     Dosage: 1 mg, every 8 hours as needed
  20. PAXIL [Concomitant]
     Dosage: 40 mg, daily
  21. PROPOXYPHENE NAPSYLATE W/ACETAMINOPHENE [Concomitant]
     Dosage: 100-650

REACTIONS (6)
  - Biliary dyskinesia [None]
  - Injury [None]
  - Pain [None]
  - Fear [None]
  - Pain [None]
  - Anxiety [None]
